FAERS Safety Report 7411962-2 (Version None)
Quarter: 2011Q2

REPORT INFORMATION
  Report Type: 
  Country: None (occurrence: None)
  Receive Date: 20110413
  Receipt Date: 20070628
  Transmission Date: 20111010
  Serious: Yes (Death, Hospitalization)
  Sender: FDA-Public Use
  Company Number: US-BAYER-200712071BWH

PATIENT
  Age: 64 Year
  Sex: Male
  Weight: 82 kg

DRUGS (28)
  1. HEPARIN [Concomitant]
     Dosage: 2 CC IN 500 CC NORMAL SALINE
     Route: 042
     Dates: start: 20040505, end: 20040505
  2. PRIMACOR [Concomitant]
     Dosage: 40 MG PLUS 200 ML D5W.
     Route: 042
     Dates: start: 20040505, end: 20040505
  3. PROTAMINE SULFATE [Concomitant]
     Dosage: 5 CC IN 50 CC OF NORMAL SALINE
     Route: 042
     Dates: start: 20040505, end: 20040505
  4. LEVOPHED [Concomitant]
     Dosage: 8 MG IN 250 ML NORMAL SALINE
     Route: 042
     Dates: start: 20040505, end: 20040505
  5. NEOSPORIN IRRIGATING [Concomitant]
     Dosage: 1 ML PLUS 500 CC NORMAL SALINE
     Route: 042
     Dates: start: 20040505, end: 20040505
  6. K-DUR [Concomitant]
     Dosage: 20 MEQ, HS
     Route: 048
  7. MANNITOL [Concomitant]
     Dosage: 25 G, PRIME
     Route: 042
     Dates: start: 20040505, end: 20040505
  8. NORMOSOL [Concomitant]
     Dosage: PRIME WITH HEPARIN
     Route: 042
     Dates: start: 20040505, end: 20040505
  9. NATRECOR [Concomitant]
     Dosage: 250 CC
     Dates: start: 20040505, end: 20040505
  10. SINGULAIR [Concomitant]
     Dosage: 10 MG, HS
     Route: 048
     Dates: start: 20040216
  11. LASIX [Concomitant]
     Dosage: 40 MG, QD
  12. ACETYLSALICYLIC ACID SRT [Concomitant]
     Dosage: 325 MG, QD
     Route: 048
  13. ALTACE [Concomitant]
     Dosage: 2.5 MG, HS
     Route: 048
  14. RESTORIL [Concomitant]
     Indication: INSOMNIA
     Dosage: 15 MG, HS
     Route: 048
     Dates: start: 20040419
  15. METHOCARBAMOL [Concomitant]
     Dosage: 500 MG, QD
     Route: 048
     Dates: start: 20011107
  16. AMIODARONE HCL [Concomitant]
     Dosage: 200 MG, QD
     Route: 048
     Dates: start: 20040409
  17. SODIUM CHLORIDE [Concomitant]
     Dosage: 50 MBQ, PRIME WITH NORMOSOL
     Route: 042
     Dates: start: 20040505, end: 20040505
  18. HEPARIN [Concomitant]
     Dosage: 5 CC PLUS NORMOSOL TIMES 2 (PRIME)
     Route: 042
     Dates: start: 20040505, end: 20040505
  19. QVAR 40 [Concomitant]
     Indication: CHRONIC OBSTRUCTIVE PULMONARY DISEASE
     Dosage: 80 MCG, 2 PUFFS BID, INHALATION
  20. TRASYLOL [Suspect]
     Indication: CORONARY ARTERY BYPASS
     Dosage: 200 ML, LOADING DISE
     Dates: start: 20040505, end: 20040505
  21. NEURONTIN [Concomitant]
     Dosage: 100 MG, HS
     Route: 048
  22. ACIPHEX [Concomitant]
     Dosage: 20 MG, QD
     Route: 048
  23. WELLBUTRIN [Concomitant]
     Dosage: 150 MG, QD
     Route: 048
     Dates: start: 20011210
  24. NEO-SYNEPHRINOL [Concomitant]
     Dosage: 20 MG IN 250 ML OF NORMAL SALINE
     Route: 042
     Dates: start: 20040505, end: 20040505
  25. LASIX [Concomitant]
     Dosage: 40 MG, PRN
  26. LESCOL [Concomitant]
     Dosage: 40 MG, QD
     Route: 048
  27. ZANTAC [Concomitant]
     Dosage: 300 MG, HS
     Route: 048
  28. NITROGLYCERIN [Concomitant]
     Dosage: UNK
     Route: 042
     Dates: start: 20040505, end: 20040505

REACTIONS (8)
  - EMOTIONAL DISTRESS [None]
  - FEAR OF DEATH [None]
  - INJURY [None]
  - ANHEDONIA [None]
  - RENAL FAILURE [None]
  - PAIN [None]
  - ANXIETY [None]
  - DEPRESSION [None]
